FAERS Safety Report 10408908 (Version 2)
Quarter: 2014Q3

REPORT INFORMATION
  Report Type: Spontaneous
  Country: US (occurrence: US)
  Receive Date: 20140826
  Receipt Date: 20140912
  Transmission Date: 20150326
  Serious: Yes (Hospitalization, Other)
  Sender: FDA-Public Use
  Company Number: US-SHIRE-US201405195

PATIENT
  Age: 43 Year
  Sex: Female
  Weight: 58.5 kg

DRUGS (2)
  1. VYVANSE [Suspect]
     Active Substance: LISDEXAMFETAMINE DIMESYLATE
     Dosage: 70 MG, ONE DOSE
     Route: 048
     Dates: start: 20140804, end: 20140805
  2. VYVANSE [Suspect]
     Active Substance: LISDEXAMFETAMINE DIMESYLATE
     Indication: ATTENTION DEFICIT/HYPERACTIVITY DISORDER
     Dosage: 120 MG, 1X/DAY:QD
     Route: 048

REACTIONS (8)
  - Amnesia [Recovered/Resolved]
  - Behavioural and psychiatric symptoms of dementia [Recovered/Resolved]
  - Hallucination [Recovered/Resolved]
  - Paranoia [Recovered/Resolved]
  - Adverse event [Recovered/Resolved]
  - Drug effect increased [Recovered/Resolved]
  - Thinking abnormal [Recovered/Resolved]
  - Prescribed overdose [Recovered/Resolved]

NARRATIVE: CASE EVENT DATE: 20140804
